FAERS Safety Report 10261191 (Version 1)
Quarter: 2014Q2

REPORT INFORMATION
  Report Type: Spontaneous
  Country: AT (occurrence: AT)
  Receive Date: 20140626
  Receipt Date: 20140626
  Transmission Date: 20141212
  Serious: Yes (Hospitalization)
  Sender: FDA-Public Use
  Company Number: AT-JNJFOC-20140613431

PATIENT
  Sex: Male

DRUGS (1)
  1. SIMPONI [Suspect]
     Indication: SPONDYLITIS
     Route: 058
     Dates: start: 201202

REACTIONS (3)
  - Road traffic accident [Recovered/Resolved]
  - Fibula fracture [Recovered/Resolved]
  - Foot fracture [Recovered/Resolved]
